FAERS Safety Report 21978140 (Version 2)
Quarter: 2023Q1

REPORT INFORMATION
  Report Type: Spontaneous
  Country: FR (occurrence: FR)
  Receive Date: 20230210
  Receipt Date: 20230309
  Transmission Date: 20230417
  Serious: No
  Sender: FDA-Public Use
  Company Number: FR-GSKCCFEMEA-Case-01665401_AE-67169

PATIENT

DRUGS (1)
  1. SERETIDE [Suspect]
     Active Substance: FLUTICASONE PROPIONATE\SALMETEROL XINAFOATE
     Indication: Product used for unknown indication
     Dosage: UNK, 250?G/50?G

REACTIONS (1)
  - Product use issue [Unknown]
